FAERS Safety Report 7287574-0 (Version None)
Quarter: 2011Q1

REPORT INFORMATION
  Report Type: 
  Country: None (occurrence: None)
  Receive Date: 20110211
  Receipt Date: 20110201
  Transmission Date: 20110831
  Serious: Yes (Life-Threatening, Hospitalization)
  Sender: FDA-Public Use
  Company Number: DE-JNJFOC-20040301747

PATIENT
  Age: 68 Year
  Sex: Male

DRUGS (9)
  1. REMICADE [Suspect]
     Dosage: 3 INFUSIONS
     Route: 042
  2. ADALIMUMAB [Concomitant]
  3. ADALIMUMAB [Concomitant]
  4. REMICADE [Suspect]
     Route: 042
  5. METHOTREXATE [Concomitant]
     Indication: RHEUMATOID ARTHRITIS
  6. ADALIMUMAB [Concomitant]
  7. REMICADE [Suspect]
     Indication: RHEUMATOID ARTHRITIS
     Route: 042
  8. REMICADE [Suspect]
     Route: 042
  9. ALL OTHER THERAPEUTIC PRODUCTS [Concomitant]

REACTIONS (6)
  - NON-HODGKIN'S LYMPHOMA [None]
  - BLOOD PRESSURE INCREASED [None]
  - AORTIC DISSECTION [None]
  - CHILLS [None]
  - PYREXIA [None]
  - BACK PAIN [None]
